FAERS Safety Report 16489585 (Version 1)
Quarter: 2019Q2

REPORT INFORMATION
  Report Type: Spontaneous
  Country: US (occurrence: US)
  Receive Date: 20190628
  Receipt Date: 20190628
  Transmission Date: 20190711
  Serious: No
  Sender: FDA-Public Use
  Company Number: US-ACCORD-069302

PATIENT
  Age: 73 Year
  Sex: Female
  Weight: 71.21 kg

DRUGS (1)
  1. CLONAZEPAM. [Suspect]
     Active Substance: CLONAZEPAM
     Indication: ANXIETY
     Dosage: STRENGTH: 0.5 MG
     Route: 048
     Dates: start: 201805, end: 20180719

REACTIONS (1)
  - Drug ineffective [Unknown]
